FAERS Safety Report 18643414 (Version 1)
Quarter: 2020Q4

REPORT INFORMATION
  Report Type: Spontaneous
  Country: US (occurrence: US)
  Receive Date: 20201221
  Receipt Date: 20201221
  Transmission Date: 20210114
  Serious: No
  Sender: FDA-Public Use
  Company Number: None

PATIENT
  Age: 28 Year
  Sex: Female
  Weight: 54.9 kg

DRUGS (10)
  1. FISH OIL [Concomitant]
     Active Substance: FISH OIL
  2. METHIMAZOLE. [Concomitant]
     Active Substance: METHIMAZOLE
  3. COLACE [Concomitant]
     Active Substance: DOCUSATE SODIUM
  4. POSTNATAL VITAMIN [Concomitant]
  5. METHIMAZOLE 10MG, PRESCRIBED 30MG [Suspect]
     Active Substance: METHIMAZOLE
     Indication: HYPERTHYROIDISM
     Dates: start: 20201204, end: 20201220
  6. CHOLESTYRAMINE. [Concomitant]
     Active Substance: CHOLESTYRAMINE
  7. PROPRANOLOL [Concomitant]
     Active Substance: PROPRANOLOL HYDROCHLORIDE
  8. LORAZEPAM. [Concomitant]
     Active Substance: LORAZEPAM
  9. BENADRYL [Concomitant]
     Active Substance: DIPHENHYDRAMINE HYDROCHLORIDE
  10. VIT D [Concomitant]
     Active Substance: VITAMIN D NOS

REACTIONS (5)
  - Urticaria [None]
  - Alcohol interaction [None]
  - Generalised oedema [None]
  - Swelling [None]
  - Hypersensitivity [None]

NARRATIVE: CASE EVENT DATE: 20201218
